FAERS Safety Report 8545989-4 (Version None)
Quarter: 2012Q3

REPORT INFORMATION
  Report Type: 
  Country: None (occurrence: None)
  Receive Date: 20120727
  Receipt Date: 20111128
  Transmission Date: 20120928
  Serious: No
  Sender: FDA-Public Use
  Company Number: US-ASTRAZENECA-2011SE72520

PATIENT
  Sex: Female

DRUGS (4)
  1. ABILIFY [Suspect]
     Route: 065
  2. SEROQUEL [Suspect]
     Route: 048
  3. SEROQUEL [Suspect]
     Route: 048
  4. ZOLOFT [Concomitant]

REACTIONS (5)
  - ANXIETY [None]
  - MEMORY IMPAIRMENT [None]
  - THERAPY CESSATION [None]
  - INSOMNIA [None]
  - MATERNAL EXPOSURE DURING PREGNANCY [None]
